FAERS Safety Report 22396797 (Version 2)
Quarter: 2023Q2

REPORT INFORMATION
  Report Type: Spontaneous
  Country: JP (occurrence: JP)
  Receive Date: 20230601
  Receipt Date: 20230615
  Transmission Date: 20230721
  Serious: Yes (Death, Other)
  Sender: FDA-Public Use
  Company Number: JP-SAKK-2023SA165067AA

PATIENT
  Age: 90 Year
  Sex: Female
  Weight: 40 kg

DRUGS (1)
  1. ENJAYMO [Suspect]
     Active Substance: SUTIMLIMAB-JOME
     Indication: Cold type haemolytic anaemia
     Dosage: DAILY DOSE^ 6.5
     Route: 041
     Dates: end: 202304

REACTIONS (2)
  - Renal disorder [Fatal]
  - Sepsis [Fatal]

NARRATIVE: CASE EVENT DATE: 20230401
